FAERS Safety Report 6645383-7 (Version None)
Quarter: 2010Q1

REPORT INFORMATION
  Report Type: 
  Country: None (occurrence: None)
  Receive Date: 20100322
  Receipt Date: 20100316
  Transmission Date: 20100710
  Serious: Yes (Other)
  Sender: FDA-Public Use
  Company Number: GB-MERCK-1003GBR00056

PATIENT
  Age: 40 Year
  Sex: Male

DRUGS (4)
  1. PROSCAR [Suspect]
     Indication: ALOPECIA
     Route: 048
     Dates: start: 20040101
  2. PROSCAR [Suspect]
     Route: 048
     Dates: start: 20060101, end: 20080101
  3. PROSCAR [Suspect]
     Route: 048
     Dates: start: 19980101, end: 20040101
  4. AVODART [Suspect]
     Indication: ALOPECIA
     Route: 048
     Dates: start: 20080101, end: 20090101

REACTIONS (3)
  - DARK CIRCLES UNDER EYES [None]
  - DYSGEUSIA [None]
  - SKIN ATROPHY [None]
